FAERS Safety Report 9404493 (Version 1)
Quarter: 2013Q3

REPORT INFORMATION
  Report Type: Spontaneous
  Country: US (occurrence: None)
  Receive Date: 20130715
  Receipt Date: 20130715
  Transmission Date: 20140515
  Serious: Yes (Other)
  Sender: FDA-Public Use
  Company Number: TPA2013A06635

PATIENT
  Sex: Male

DRUGS (2)
  1. ACTOS [Suspect]
     Indication: DIABETES MELLITUS
     Route: 048
     Dates: end: 201108
  2. GLIPIZIDE (GLIPIZIDE) [Concomitant]

REACTIONS (1)
  - Transitional cell carcinoma urethra [None]
